FAERS Safety Report 6235953-2 (Version None)
Quarter: 2009Q2

REPORT INFORMATION
  Report Type: 
  Country: None (occurrence: None)
  Receive Date: 20090617
  Receipt Date: 20090617
  Transmission Date: 20091009
  Serious: Yes (Other)
  Sender: FDA-Public Use
  Company Number: None

PATIENT
  Sex: Female
  Weight: 87.9978 kg

DRUGS (1)
  1. ZICAM NASAL GEL [Suspect]
     Indication: SINUS CONGESTION
     Dosage: 1 SPRAY DAILY NASAL, 1 DAY, ONE DOSE
     Route: 045
     Dates: start: 20081212

REACTIONS (4)
  - HYPOSMIA [None]
  - NASAL DISCOMFORT [None]
  - NASAL DRYNESS [None]
  - SINUS DISORDER [None]
